FAERS Safety Report 6600962-8 (Version None)
Quarter: 2010Q1

REPORT INFORMATION
  Report Type: 
  Country: None (occurrence: None)
  Receive Date: 20100225
  Receipt Date: 20100215
  Transmission Date: 20100710
  Serious: Yes (Death)
  Sender: FDA-Public Use
  Company Number: US-JNJFOC-20100207958

PATIENT
  Sex: Male
  Weight: 70.76 kg

DRUGS (10)
  1. FENTANYL [Suspect]
     Indication: DRUG USE FOR UNKNOWN INDICATION
     Route: 062
  2. FENTANYL [Suspect]
     Route: 062
  3. TYLENOL-500 [Suspect]
  4. TYLENOL-500 [Suspect]
     Indication: DRUG USE FOR UNKNOWN INDICATION
  5. AMITRIPTYLINE HCL [Suspect]
     Indication: DRUG USE FOR UNKNOWN INDICATION
  6. NORTRIPTYLINE HCL [Suspect]
     Indication: DRUG USE FOR UNKNOWN INDICATION
  7. DIPHENHYDRAMINE HCL [Suspect]
     Indication: DRUG USE FOR UNKNOWN INDICATION
  8. PROMETHAZINE [Suspect]
     Indication: DRUG USE FOR UNKNOWN INDICATION
  9. ETHANOL [Suspect]
     Indication: DRUG USE FOR UNKNOWN INDICATION
  10. DEXTROPROPOXYPHENE [Suspect]
     Indication: DRUG USE FOR UNKNOWN INDICATION

REACTIONS (1)
  - DRUG TOXICITY [None]
